FAERS Safety Report 24608155 (Version 1)
Quarter: 2024Q4

REPORT INFORMATION
  Report Type: Spontaneous
  Country: US (occurrence: US)
  Receive Date: 20241112
  Receipt Date: 20241112
  Transmission Date: 20250115
  Serious: Yes (Other)
  Sender: ITALFARMACO SPA
  Company Number: US-ITALFARMACO SPA-2164907

PATIENT
  Age: 11 Year
  Sex: Male
  Weight: 48.4 kg

DRUGS (1)
  1. DUVYZAT [Suspect]
     Active Substance: GIVINOSTAT
     Indication: Duchenne muscular dystrophy
     Dates: start: 20240912

REACTIONS (1)
  - Platelet count decreased [Unknown]
